FAERS Safety Report 14014005 (Version 1)
Quarter: 2017Q3

REPORT INFORMATION
  Report Type: Spontaneous
  Country: GB (occurrence: GB)
  Receive Date: 20170926
  Receipt Date: 20170926
  Transmission Date: 20171128
  Serious: Yes (Other)
  Sender: FDA-Public Use
  Company Number: GB-ALLERGAN-1754760US

PATIENT
  Age: 69 Year
  Sex: Female
  Weight: 69.85 kg

DRUGS (2)
  1. NITROGLYCERIN UNK [Suspect]
     Active Substance: NITROGLYCERIN
     Indication: RECTAL FISSURE
     Dosage: 375 MG, UNK
     Route: 061
     Dates: start: 20170628, end: 20170628
  2. BOTOX [Concomitant]
     Active Substance: ONABOTULINUMTOXINA
     Indication: DYSTONIA
     Dosage: UNK UNK, SINGLE
     Route: 030

REACTIONS (3)
  - Dizziness [Recovered/Resolved]
  - Vomiting [Recovered/Resolved]
  - Syncope [Recovered/Resolved]

NARRATIVE: CASE EVENT DATE: 20170628
